FAERS Safety Report 17408810 (Version 1)
Quarter: 2020Q1

REPORT INFORMATION
  Report Type: Spontaneous
  Country: US (occurrence: US)
  Receive Date: 20200212
  Receipt Date: 20200212
  Transmission Date: 20200409
  Serious: No
  Sender: FDA-Public Use
  Company Number: US-009507513-2002USA001702

PATIENT
  Age: 4 Year
  Sex: Male

DRUGS (2)
  1. REBETOL [Suspect]
     Active Substance: RIBAVIRIN
     Indication: LOWER RESPIRATORY TRACT INFECTION VIRAL
  2. REBETOL [Suspect]
     Active Substance: RIBAVIRIN
     Indication: RESPIRATORY SYNCYTIAL VIRUS INFECTION
     Dosage: UNK
     Route: 048

REACTIONS (1)
  - Off label use [Unknown]
